FAERS Safety Report 26113172 (Version 1)
Quarter: 2025Q4

REPORT INFORMATION
  Report Type: Spontaneous
  Country: CN (occurrence: CN)
  Receive Date: 20251202
  Receipt Date: 20251202
  Transmission Date: 20260117
  Serious: Yes (Life-Threatening)
  Sender: FRESENIUS KABI
  Company Number: CN-FreseniusKabi-FK202516161

PATIENT
  Age: 71 Year
  Sex: Female
  Weight: 64 kg

DRUGS (10)
  1. PROPOFOL [Suspect]
     Active Substance: PROPOFOL
     Indication: Anaesthesia
     Dosage: FOA- INJECTION?ROA- INTRAVENOUS INJECTION
     Route: 042
     Dates: start: 20251110, end: 20251110
  2. PROPOFOL [Suspect]
     Active Substance: PROPOFOL
     Indication: Endotracheal intubation
  3. MIDAZOLAM HYDROCHLORIDE [Suspect]
     Active Substance: MIDAZOLAM HYDROCHLORIDE
     Indication: Anaesthesia
     Dosage: FOA- INJECTION?ROA- INTRAVENOUS INJECTION
     Route: 042
     Dates: start: 20251110, end: 20251110
  4. MIDAZOLAM HYDROCHLORIDE [Suspect]
     Active Substance: MIDAZOLAM HYDROCHLORIDE
     Indication: Endotracheal intubation
  5. SUFENTANIL CITRATE [Suspect]
     Active Substance: SUFENTANIL CITRATE
     Indication: Anaesthesia
     Dosage: FOA- INJECTION?ROA- INTRAVENOUS INJECTION
     Route: 042
     Dates: start: 20251110, end: 20251110
  6. SUFENTANIL CITRATE [Suspect]
     Active Substance: SUFENTANIL CITRATE
     Indication: Endotracheal intubation
  7. ROCURONIUM BROMIDE [Suspect]
     Active Substance: ROCURONIUM BROMIDE
     Indication: Anaesthesia
     Dosage: FOA- INJECTION?ROA- INTRAVENOUS INJECTION
     Route: 042
     Dates: start: 20251110, end: 20251110
  8. ROCURONIUM BROMIDE [Suspect]
     Active Substance: ROCURONIUM BROMIDE
     Indication: Endotracheal intubation
  9. ETOMIDATE [Concomitant]
     Active Substance: ETOMIDATE
     Indication: Anaesthesia
     Dosage: FOA- INJECTION?ROA- INTRAVENOUS INJECTION
     Route: 042
     Dates: start: 20251110, end: 20251110
  10. ETOMIDATE [Concomitant]
     Active Substance: ETOMIDATE
     Indication: Endotracheal intubation

REACTIONS (1)
  - Anaphylactic shock [Recovered/Resolved]

NARRATIVE: CASE EVENT DATE: 20251110
